FAERS Safety Report 4805225-9 (Version None)
Quarter: 2005Q4

REPORT INFORMATION
  Report Type: 
  Country: None (occurrence: None)
  Receive Date: 20051020
  Receipt Date: 20050629
  Transmission Date: 20060501
  Serious: Yes (Hospitalization)
  Sender: FDA-Public Use
  Company Number: US-MERCK-0507USA00201

PATIENT
  Age: 64 Year
  Sex: Male
  Weight: 87 kg

DRUGS (24)
  1. VIOXX [Suspect]
     Indication: ARTHRALGIA
     Route: 048
     Dates: start: 20010402, end: 20040901
  2. PROCARDIA [Concomitant]
     Indication: HYPERTENSION
     Route: 048
     Dates: start: 19980101, end: 20040101
  3. PRILOSEC [Concomitant]
     Route: 048
  4. PREVACID [Concomitant]
     Indication: GASTROOESOPHAGEAL REFLUX DISEASE
     Route: 048
  5. MIRALAX [Concomitant]
     Route: 065
  6. ALDARA [Concomitant]
     Indication: SKIN LESION
     Route: 065
  7. CEPHALEXIN [Concomitant]
     Indication: ANTIBIOTIC LEVEL THERAPEUTIC
     Route: 065
  8. LORATADINE [Concomitant]
     Indication: HYPERSENSITIVITY
     Route: 065
  9. FENESIN [Concomitant]
     Indication: NASAL DECONGESTION THERAPY
     Route: 065
  10. GLYCOLAX [Concomitant]
     Indication: CONSTIPATION
     Route: 065
  11. HYDROCODONE BITARTRATE + ACETAMINOPHEN [Concomitant]
     Indication: ANALGESIC EFFECT
     Route: 065
  12. HYDRO-TUSSIN HD [Concomitant]
     Route: 065
  13. IBUPROFEN [Concomitant]
     Route: 065
  14. LEVAQUIN [Concomitant]
     Route: 065
  15. LIVOSTIN [Concomitant]
     Route: 065
  16. ACETAMINOPHEN AND OXYCODONE HYDROCHLORIDE [Concomitant]
     Indication: ANALGESIC EFFECT
     Route: 065
  17. PLAVIX [Concomitant]
     Indication: ANTICOAGULANT THERAPY
     Route: 065
  18. PREDNISONE [Concomitant]
     Indication: STEROID THERAPY
     Route: 065
  19. SULFACETAMIDE [Concomitant]
     Indication: EYE INFECTION
     Route: 065
  20. ZITHROMAX [Concomitant]
     Indication: ANTIBIOTIC LEVEL THERAPEUTIC
     Route: 065
  21. ALLEGRA [Concomitant]
     Indication: HYPERSENSITIVITY
     Route: 065
  22. NIFEDIPINE [Concomitant]
     Indication: HYPERTENSION
     Route: 065
  23. NIFEDIPINE [Concomitant]
     Indication: ANGINA PECTORIS
     Route: 065
  24. LIPITOR [Concomitant]
     Indication: BLOOD CHOLESTEROL INCREASED
     Route: 065
     Dates: start: 20040217, end: 20040619

REACTIONS (7)
  - ACUTE MYOCARDIAL INFARCTION [None]
  - ANGINA UNSTABLE [None]
  - ESCHERICHIA URINARY TRACT INFECTION [None]
  - GASTROOESOPHAGEAL REFLUX DISEASE [None]
  - HEART SOUNDS ABNORMAL [None]
  - HYPOTENSION [None]
  - PYURIA [None]
